FAERS Safety Report 7050954-2 (Version None)
Quarter: 2010Q4

REPORT INFORMATION
  Report Type: 
  Country: None (occurrence: None)
  Receive Date: 20101019
  Receipt Date: 20101014
  Transmission Date: 20110411
  Serious: Yes (Congenital Anomaly, Other)
  Sender: FDA-Public Use
  Company Number: FR-US-EMD SERONO, INC.-7018271

PATIENT
  Sex: Female

DRUGS (3)
  1. REBIF [Suspect]
     Indication: MULTIPLE SCLEROSIS
     Route: 058
     Dates: start: 20100610, end: 20100917
  2. MELIANE [Concomitant]
     Indication: CONTRACEPTION
     Route: 048
  3. VITAMIN D [Concomitant]

REACTIONS (2)
  - RETINAL EXUDATES [None]
  - VISUAL ACUITY REDUCED [None]
